FAERS Safety Report 16530212 (Version 2)
Quarter: 2019Q3

REPORT INFORMATION
  Report Type: Spontaneous
  Country: FR (occurrence: FR)
  Receive Date: 20190704
  Receipt Date: 20190719
  Transmission Date: 20191004
  Serious: Yes (Hospitalization)
  Sender: FDA-Public Use
  Company Number: FR-B.I. PHARMACEUTICALS,INC./RIDGEFIELD-2019-BI-028317

PATIENT
  Age: 83 Year
  Sex: Female

DRUGS (2)
  1. CATAPRESSAN [Suspect]
     Active Substance: CLONIDINE
     Indication: HYPERTENSIVE CRISIS
     Route: 048
     Dates: start: 201906, end: 201906
  2. CATAPRESSAN [Suspect]
     Active Substance: CLONIDINE
     Route: 048
     Dates: start: 201906

REACTIONS (2)
  - Hypertensive crisis [Recovered/Resolved]
  - Dry mouth [Recovered/Resolved]

NARRATIVE: CASE EVENT DATE: 20190625
